FAERS Safety Report 7385561-5 (Version None)
Quarter: 2011Q1

REPORT INFORMATION
  Report Type: 
  Country: None (occurrence: None)
  Receive Date: 20110331
  Receipt Date: 20110324
  Transmission Date: 20110831
  Serious: Yes (Hospitalization)
  Sender: FDA-Public Use
  Company Number: US-BIOGENIDEC-2011BI011194

PATIENT
  Age: 47 Year
  Sex: Female

DRUGS (3)
  1. NEURONTIN [Concomitant]
  2. PREDNISONE [Concomitant]
  3. AVONEX [Suspect]
     Indication: MULTIPLE SCLEROSIS
     Route: 030
     Dates: start: 20030101

REACTIONS (7)
  - DIZZINESS [None]
  - FATIGUE [None]
  - DYSPNOEA [None]
  - DRY MOUTH [None]
  - NECK PAIN [None]
  - INTERVERTEBRAL DISC PROTRUSION [None]
  - VERTIGO [None]
